FAERS Safety Report 10911650 (Version 1)
Quarter: 2015Q1

REPORT INFORMATION
  Report Type: Spontaneous
  Country: US (occurrence: None)
  Receive Date: 20150309
  Receipt Date: 20150309
  Transmission Date: 20150721
  Serious: Yes (Other)
  Sender: FDA-Public Use
  Company Number: None

PATIENT
  Age: 45 Year
  Sex: Female

DRUGS (1)
  1. REBIF [Suspect]
     Active Substance: INTERFERON BETA-1A
     Indication: MULTIPLE SCLEROSIS
     Dosage: 22MCG, 3X/WK, SQ
     Route: 058
     Dates: start: 20141231

REACTIONS (3)
  - Influenza like illness [None]
  - Palpitations [None]
  - Injection site reaction [None]

NARRATIVE: CASE EVENT DATE: 20150203
